FAERS Safety Report 5418091-8 (Version None)
Quarter: 2007Q3

REPORT INFORMATION
  Report Type: 
  Country: None (occurrence: None)
  Receive Date: 20070817
  Receipt Date: 20070809
  Transmission Date: 20080115
  Serious: Yes (Other)
  Sender: FDA-Public Use
  Company Number: CA-ASTRAZENECA-2007UW18263

PATIENT
  Age: 26009 Day
  Sex: Female

DRUGS (9)
  1. ARIMIDEX [Suspect]
     Indication: BREAST CANCER FEMALE
     Route: 048
  2. FASLODEX [Suspect]
     Indication: BREAST CANCER FEMALE
     Route: 030
     Dates: start: 20070205
  3. LORAZEPAM [Concomitant]
     Indication: INSOMNIA
     Route: 048
     Dates: start: 20061215
  4. TYLENOL (CAPLET) [Concomitant]
     Indication: HEADACHE
     Dates: start: 20061201
  5. TYLENOL (CAPLET) [Concomitant]
     Indication: NECK PAIN
     Dates: start: 20061201
  6. TYLENOL (CAPLET) [Concomitant]
     Indication: MUSCULOSKELETAL PAIN
     Dates: start: 20061201
  7. LOSEC [Concomitant]
     Indication: DYSPEPSIA
     Dates: start: 20070222
  8. CALCIUM CHLORIDE [Concomitant]
     Route: 048
  9. SYMBYAX [Concomitant]
     Route: 048
     Dates: start: 20070515

REACTIONS (1)
  - ARRHYTHMIA [None]
